FAERS Safety Report 13317899 (Version 1)
Quarter: 2017Q1

REPORT INFORMATION
  Report Type: Spontaneous
  Country: US (occurrence: US)
  Receive Date: 20170309
  Receipt Date: 20170309
  Transmission Date: 20170428
  Serious: Yes (Other)
  Sender: FDA-Public Use
  Company Number: None

PATIENT
  Age: 65 Year
  Sex: Female

DRUGS (1)
  1. ATENOLOL TAB [Suspect]
     Active Substance: ATENOLOL
     Indication: HYPERTENSION
     Route: 048

REACTIONS (4)
  - Chest discomfort [None]
  - Product substitution issue [None]
  - Heart rate irregular [None]
  - Presyncope [None]

NARRATIVE: CASE EVENT DATE: 20170203
